FAERS Safety Report 8789027 (Version 1)
Quarter: 2012Q4

REPORT INFORMATION
  Report Type: 
  Country: FR (occurrence: FR)
  Receive Date: 20120917
  Receipt Date: 20120917
  Transmission Date: 20130627
  Serious: Yes (Hospitalization)
  Sender: FDA-Public Use
  Company Number: FR-GE HEALTHCARE MEDICAL DIAGNOSTICS-VISP-NO-1209S-0371

PATIENT
  Age: 87 Year
  Sex: Male

DRUGS (6)
  1. VISIPAQUE [Suspect]
     Indication: PRODUCT USED FOR UNKNOWN INDICATION
     Dosage: dose not reported
     Route: 042
     Dates: start: 20120627, end: 20120627
  2. OFLOCET [Suspect]
     Dates: start: 20120507, end: 20120630
  3. VANCOMYCIN [Suspect]
     Route: 042
     Dates: start: 20120522, end: 20120705
  4. RIFAMPICINE [Suspect]
     Dates: start: 20120507, end: 20120705
  5. LOVENOX [Suspect]
     Route: 058
     Dates: start: 20120423, end: 20120701
  6. PARACETAMOL [Suspect]
     Route: 048
     Dates: start: 20120619, end: 20120707

REACTIONS (3)
  - Rash maculo-papular [Recovered/Resolved]
  - Eosinophil count increased [Recovered/Resolved]
  - Renal failure [Recovered/Resolved]
